FAERS Safety Report 13490039 (Version 1)
Quarter: 2017Q2

REPORT INFORMATION
  Report Type: Spontaneous
  Country: RU (occurrence: RU)
  Receive Date: 20170426
  Receipt Date: 20170426
  Transmission Date: 20170830
  Serious: Yes (Hospitalization)
  Sender: FDA-Public Use
  Company Number: RU-ASTRAZENECA-2017SE42053

PATIENT
  Age: 59 Year
  Sex: Male
  Weight: 83 kg

DRUGS (11)
  1. THROMBO ASS [Concomitant]
     Active Substance: ASPIRIN
  2. NOLPAZA [Concomitant]
     Active Substance: PANTOPRAZOLE SODIUM
  3. OMACOR [Concomitant]
     Active Substance: OMEGA-3-ACID ETHYL ESTERS
  4. NORVASK [Concomitant]
     Active Substance: AMLODIPINE BESYLATE
  5. PREDUCTAL [Concomitant]
     Active Substance: TRIMETAZIDINE DIHYDROCHLORIDE
  6. BRILINTA [Suspect]
     Active Substance: TICAGRELOR
     Indication: ANGINA UNSTABLE
     Route: 048
     Dates: start: 20170306
  7. ZOCARDIS [Concomitant]
  8. CONCOR [Concomitant]
     Active Substance: BISOPROLOL FUMARATE
  9. SYDNOPHARM [Concomitant]
  10. LIPRIMAR [Concomitant]
     Active Substance: ATORVASTATIN CALCIUM
  11. TRITTICO [Concomitant]
     Active Substance: TRAZODONE HYDROCHLORIDE

REACTIONS (1)
  - Chest pain [Recovered/Resolved]
